FAERS Safety Report 5470678-2 (Version None)
Quarter: 2007Q3

REPORT INFORMATION
  Report Type: 
  Country: None (occurrence: None)
  Receive Date: 20070925
  Receipt Date: 20070910
  Transmission Date: 20080115
  Serious: Yes (Hospitalization)
  Sender: FDA-Public Use
  Company Number: JP-1164084

PATIENT
  Age: 85 Year
  Sex: Male

DRUGS (10)
  1. VIGAMOX [Suspect]
     Indication: ANTIBIOTIC PROPHYLAXIS
     Dosage: 1 GTT OS QID
     Route: 047
     Dates: start: 20070903, end: 20070907
  2. BRONUCK (BROMFENAC SODIUM) [Concomitant]
  3. DIAGNOGREEN (INDOCYANINE GREEN) [Concomitant]
  4. DEXAMETHASONE SODIUM METASULFOBENZOATE [Concomitant]
  5. PHENYLEPHRINE W/TROPICAMIDE (FOTORRETIN) [Concomitant]
  6. AMPICILLIN SODIUM W/SULBACTAM SODIUM (UNACID) [Concomitant]
  7. HYALURONATE SODIUM [Concomitant]
  8. BSS PLUS [Concomitant]
  9. PILOCARPINE HYDROCHLORIDE [Concomitant]
  10. ACETAZOLAMIDE [Concomitant]

REACTIONS (3)
  - CORNEAL OEDEMA [None]
  - INTRAOCULAR PRESSURE INCREASED [None]
  - VISION BLURRED [None]
